FAERS Safety Report 8563844-0 (Version None)
Quarter: 2012Q3

REPORT INFORMATION
  Report Type: 
  Country: None (occurrence: None)
  Receive Date: 20120727
  Receipt Date: 20120727
  Transmission Date: 20120928
  Serious: Yes (Hospitalization)
  Sender: FDA-Public Use
  Company Number: None

PATIENT
  Age: 89 Year
  Sex: Male
  Weight: 62.1 kg

DRUGS (13)
  1. VITAMIN D [Concomitant]
  2. CHERATUSSIN [Concomitant]
  3. LEVAQUIN [Suspect]
     Indication: BRONCHITIS
     Dosage: 1-DAY PO RECENT
     Route: 048
  4. TESSALON [Concomitant]
  5. FOLIC ACID [Concomitant]
  6. FLUTICASONE PROPIONATE [Concomitant]
  7. SPIRIVA [Concomitant]
  8. COMBIVENT [Concomitant]
  9. WARFARIN SODIUM [Suspect]
     Indication: ATRIAL FIBRILLATION
     Dosage: 3MG DAILY PO CHRONIC
     Route: 048
  10. CENTRUM [Concomitant]
  11. VITAMIN B-12 [Concomitant]
  12. MOM [Concomitant]
  13. ASPIRIN [Concomitant]

REACTIONS (6)
  - LOBAR PNEUMONIA [None]
  - INTERNATIONAL NORMALISED RATIO INCREASED [None]
  - DRUG INTERACTION [None]
  - BRONCHITIS [None]
  - BRONCHOSPASM [None]
  - ATRIAL FIBRILLATION [None]
